FAERS Safety Report 6187647-X (Version None)
Quarter: 2009Q2

REPORT INFORMATION
  Report Type: 
  Country: None (occurrence: None)
  Receive Date: 20090511
  Receipt Date: 20090507
  Transmission Date: 20091009
  Serious: Yes (Death)
  Sender: FDA-Public Use
  Company Number: AE-509-167

PATIENT
  Sex: Female

DRUGS (1)
  1. LIDODERM [Suspect]

REACTIONS (1)
  - DEATH [None]
